FAERS Safety Report 5893696-9 (Version None)
Quarter: 2008Q3

REPORT INFORMATION
  Report Type: 
  Country: None (occurrence: None)
  Receive Date: 20080923
  Receipt Date: 20080915
  Transmission Date: 20090109
  Serious: Yes (Other)
  Sender: FDA-Public Use
  Company Number: US-ALLERGAN-0811561US

PATIENT
  Sex: Female

DRUGS (5)
  1. COMBIGAN [Suspect]
     Indication: INTRAOCULAR PRESSURE INCREASED
     Dosage: 1 GTT, BID
     Route: 047
     Dates: start: 20080701, end: 20080801
  2. COMBIGAN [Suspect]
     Dosage: 1 GTT, BID
     Route: 047
     Dates: start: 20080901
  3. TAMOXIFEN CITRATE [Concomitant]
     Indication: BREAST CANCER
     Dosage: 20 MG, QD
     Route: 048
  4. OXYCONTIN XL [Concomitant]
     Indication: PAIN
     Dosage: 20 MG, QD
     Route: 048
  5. OXYCODONE HCL [Concomitant]
     Indication: PAIN
     Dosage: 5 MG, UNK
     Route: 048

REACTIONS (2)
  - ARRHYTHMIA [None]
  - INAPPROPRIATE SCHEDULE OF DRUG ADMINISTRATION [None]
